FAERS Safety Report 4571189-9 (Version None)
Quarter: 2005Q1

REPORT INFORMATION
  Report Type: 
  Country: None (occurrence: None)
  Receive Date: 20050202
  Receipt Date: 20050120
  Transmission Date: 20050727
  Serious: Yes (Hospitalization, Other)
  Sender: FDA-Public Use
  Company Number: 2005018174

PATIENT
  Sex: Male

DRUGS (4)
  1. VIRACEPT [Suspect]
     Indication: HIV INFECTION
     Dosage: ORAL
     Route: 048
     Dates: end: 20040730
  2. LAMIVUDINE (LAMIVUDINE) [Suspect]
     Indication: HIV INFECTION
     Dosage: ORAL
     Route: 048
     Dates: end: 20040730
  3. DIDANOSINE [Suspect]
     Indication: HIV INFECTION
     Dosage: ORAL
     Route: 048
     Dates: end: 20040730
  4. ZIDOVUDINE [Suspect]
     Indication: HIV INFECTION
     Dosage: INTRAVENOUS
     Route: 042

REACTIONS (7)
  - ABDOMINAL DISTENSION [None]
  - DRUG EXPOSURE DURING PREGNANCY [None]
  - FEEDING PROBLEM IN NEWBORN [None]
  - GASTROINTESTINAL DISORDER [None]
  - MECONIUM ABNORMAL [None]
  - NEONATAL DISORDER [None]
  - PREMATURE BABY [None]
